FAERS Safety Report 6134525-8 (Version None)
Quarter: 2009Q1

REPORT INFORMATION
  Report Type: 
  Country: None (occurrence: None)
  Receive Date: 20090327
  Receipt Date: 20090316
  Transmission Date: 20090719
  Serious: Yes (Disabling, Other)
  Sender: FDA-Public Use
  Company Number: BR-BAYER-200913746LA

PATIENT
  Age: 49 Year
  Sex: Male
  Weight: 98 kg

DRUGS (1)
  1. LEVITRA [Suspect]
     Indication: ERECTILE DYSFUNCTION
     Dosage: TOOK HALF TABLET
     Route: 048
     Dates: start: 20090201

REACTIONS (6)
  - BLINDNESS [None]
  - COLOUR BLINDNESS [None]
  - ERYTHEMA [None]
  - HEADACHE [None]
  - RETINAL OEDEMA [None]
  - VISION BLURRED [None]
